FAERS Safety Report 7450799-5 (Version None)
Quarter: 2011Q2

REPORT INFORMATION
  Report Type: 
  Country: None (occurrence: None)
  Receive Date: 20110502
  Receipt Date: 20110427
  Transmission Date: 20111010
  Serious: Yes (Hospitalization)
  Sender: FDA-Public Use
  Company Number: FR-PFIZER INC-2011090291

PATIENT
  Age: 49 Year
  Sex: Male

DRUGS (12)
  1. PHOSPHALUGEL [Concomitant]
     Dosage: 3 BAGS,1X/DAY
     Dates: start: 20050608
  2. CIFLOX [Concomitant]
     Dosage: 1 G, 1X/DAY
     Dates: start: 20050608
  3. CELLCEPT [Concomitant]
     Dosage: 2 G, 1X/DAY
     Dates: start: 20050608
  4. BACTRIM [Concomitant]
     Dosage: 3 TABLETS, WEEKLY
     Dates: start: 20050608
  5. MOPRAL [Concomitant]
     Dosage: 40 MG, 1X/DAY
     Dates: start: 20050608
  6. FORLAX [Concomitant]
     Dosage: UNK
     Dates: start: 20050608
  7. TRIATEC [Concomitant]
     Dosage: 2.5 MG, 1X/DAY
     Dates: start: 20050608
  8. VALGANCICLOVIR HYDROCHLORIDE [Concomitant]
     Dosage: 900 MG, 1X/DAY
     Dates: start: 20050608
  9. RAPAMUNE [Suspect]
     Indication: PROPHYLAXIS AGAINST TRANSPLANT REJECTION
     Dosage: 8 MG, 1X/DAY
     Route: 048
     Dates: start: 20050517
  10. CORTANCYL [Concomitant]
     Dosage: 10 MG, 1X/DAY
     Dates: start: 20050608
  11. FUNGIZONE [Concomitant]
     Dosage: 3 SPOON/DAY
     Dates: start: 20050608
  12. ARANESP [Concomitant]
     Dosage: 50 UG, WEEKLY
     Dates: start: 20050608

REACTIONS (4)
  - ASTHENIA [None]
  - PYREXIA [None]
  - ANAEMIA [None]
  - GASTRIC ULCER [None]
